FAERS Safety Report 7237502-9 (Version None)
Quarter: 2011Q1

REPORT INFORMATION
  Report Type: 
  Country: None (occurrence: None)
  Receive Date: 20110121
  Receipt Date: 20110114
  Transmission Date: 20110831
  Serious: Yes (Other)
  Sender: FDA-Public Use
  Company Number: US-SANOFI-AVENTIS-2011SA003277

PATIENT
  Sex: Male

DRUGS (4)
  1. ELOXATIN [Suspect]
     Route: 051
  2. TRASTUZUMAB [Suspect]
     Route: 051
  3. FLUOROURACIL [Suspect]
     Route: 051
  4. FOLINIC ACID [Suspect]
     Route: 065

REACTIONS (2)
  - PAPILLOEDEMA [None]
  - RETINAL HAEMORRHAGE [None]
